FAERS Safety Report 5353299-1 (Version None)
Quarter: 2007Q2

REPORT INFORMATION
  Report Type: 
  Country: None (occurrence: None)
  Receive Date: 20070518
  Receipt Date: 20070226
  Transmission Date: 20071010
  Serious: No
  Sender: FDA-Public Use
  Company Number: TPA2007A00522

PATIENT
  Age: 47 Year
  Sex: Male

DRUGS (4)
  1. ROZEREM [Suspect]
     Indication: SLEEP DISORDER
     Dosage: 8 MG, HS, PER ORAL
     Route: 048
  2. PROTONIX [Concomitant]
  3. ASPIRIN [Concomitant]
  4. EXTENDED RELEASE NIACIN (NICOTINIC ACID) [Concomitant]

REACTIONS (6)
  - DEREALISATION [None]
  - HEART RATE INCREASED [None]
  - PARAESTHESIA [None]
  - SENSATION OF BLOOD FLOW [None]
  - SENSORY DISTURBANCE [None]
  - SPONTANEOUS PENILE ERECTION [None]
